FAERS Safety Report 11054873 (Version 1)
Quarter: 2015Q2

REPORT INFORMATION
  Report Type: Spontaneous
  Country: JP (occurrence: JP)
  Receive Date: 20150422
  Receipt Date: 20150422
  Transmission Date: 20150821
  Serious: Yes (Other)
  Sender: FDA-Public Use
  Company Number: JP-BAYER-2015-136530

PATIENT
  Age: 62 Year
  Sex: Male

DRUGS (2)
  1. PANALDINE [Concomitant]
     Active Substance: TICLOPIDINE HYDROCHLORIDE
     Dosage: UNK
     Route: 048
  2. BAYASPIRIN [Suspect]
     Active Substance: ASPIRIN
     Indication: MYOCARDIAL INFARCTION
     Dosage: UNK
     Route: 048

REACTIONS (1)
  - Platelet count decreased [None]
